FAERS Safety Report 5014139-3 (Version None)
Quarter: 2006Q2

REPORT INFORMATION
  Report Type: 
  Country: None (occurrence: None)
  Receive Date: 20060414
  Receipt Date: 20060106
  Transmission Date: 20061013
  Serious: No
  Sender: FDA-Public Use
  Company Number: 2006SP000103

PATIENT
  Age: 60 Year
  Sex: Female
  Weight: 72.5755 kg

DRUGS (3)
  1. LUNESTA [Suspect]
     Indication: INSOMNIA
     Dosage: 3 MG, HS, ORAL
     Route: 048
     Dates: start: 20050801, end: 20060104
  2. ANALGESIC [Concomitant]
  3. CHOLESTEROL - AND TRIGLYCERIDE REDUCERS [Concomitant]

REACTIONS (6)
  - ANOREXIA [None]
  - ANXIETY [None]
  - DEPRESSION [None]
  - DRUG EFFECT DECREASED [None]
  - HEADACHE [None]
  - WEIGHT DECREASED [None]
